FAERS Safety Report 23347592 (Version 2)
Quarter: 2024Q1

REPORT INFORMATION
  Report Type: Spontaneous
  Country: US (occurrence: US)
  Receive Date: 20231228
  Receipt Date: 20240101
  Transmission Date: 20240410
  Serious: No
  Sender: FDA-Public Use
  Company Number: US-SA-2023SA395300

PATIENT
  Age: 48 Year
  Sex: Female

DRUGS (1)
  1. DUPIXENT [Suspect]
     Active Substance: DUPILUMAB
     Indication: Asthma
     Dosage: 300 MG, QOW
     Route: 058
     Dates: start: 202304

REACTIONS (2)
  - Nerve compression [Unknown]
  - Pain [Unknown]

NARRATIVE: CASE EVENT DATE: 20230101
